FAERS Safety Report 10066938 (Version 1)
Quarter: 2014Q2

REPORT INFORMATION
  Report Type: Spontaneous
  Country: US (occurrence: US)
  Receive Date: 20140409
  Receipt Date: 20140409
  Transmission Date: 20141212
  Serious: No
  Sender: FDA-Public Use
  Company Number: US-009507513-1404USA003684

PATIENT
  Sex: Female

DRUGS (5)
  1. PEGINTRON [Suspect]
     Indication: HEPATITIS C
     Dosage: PEGINTRON REDIPEN INJ 150
     Dates: start: 20140220
  2. PROZAC [Concomitant]
  3. ABILIFY [Concomitant]
  4. LUNESTA [Concomitant]
  5. VITAMIN D (UNSPECIFIED) [Concomitant]

REACTIONS (5)
  - Fall [Not Recovered/Not Resolved]
  - Contusion [Not Recovered/Not Resolved]
  - Feeling abnormal [Not Recovered/Not Resolved]
  - Mental impairment [Not Recovered/Not Resolved]
  - Product quality issue [Unknown]
